FAERS Safety Report 24780578 (Version 1)
Quarter: 2024Q4

REPORT INFORMATION
  Report Type: Spontaneous
  Country: FR (occurrence: FR)
  Receive Date: 20241227
  Receipt Date: 20241227
  Transmission Date: 20250115
  Serious: Yes (Hospitalization, Other)
  Sender: AUROBINDO
  Company Number: FR-AFSSAPS-GR2024001588

PATIENT
  Age: 78 Year
  Sex: Female
  Weight: 71.3 kg

DRUGS (2)
  1. DOXYCYCLINE [Suspect]
     Active Substance: DOXYCYCLINE
     Indication: Device related infection
     Dosage: 200 MILLIGRAM, ONCE A DAY (100 MG 1-0-1)
     Route: 048
     Dates: start: 20241031, end: 20241117
  2. FUSIDATE SODIUM [Suspect]
     Active Substance: FUSIDATE SODIUM
     Indication: Device related infection
     Dosage: 6 DOSAGE FORM, ONCE A DAY (2-2-2)
     Route: 048
     Dates: start: 20241031, end: 20241117

REACTIONS (3)
  - Atrial fibrillation [Recovered/Resolved]
  - Hypokalaemia [Recovered/Resolved]
  - Vomiting [Recovered/Resolved]

NARRATIVE: CASE EVENT DATE: 20241115
